FAERS Safety Report 13658468 (Version 2)
Quarter: 2017Q3

REPORT INFORMATION
  Report Type: Spontaneous
  Country: US (occurrence: US)
  Receive Date: 20170616
  Receipt Date: 20170926
  Transmission Date: 20171127
  Serious: No
  Sender: FDA-Public Use
  Company Number: US-PFIZER INC-2017260260

PATIENT
  Age: 63 Year
  Sex: Female

DRUGS (1)
  1. XELJANZ XR [Suspect]
     Active Substance: TOFACITINIB CITRATE
     Indication: PAIN IN EXTREMITY
     Dosage: 11 MG, DAILY

REACTIONS (9)
  - Diarrhoea [Unknown]
  - Dry mouth [Unknown]
  - Inflammation [Not Recovered/Not Resolved]
  - Cartilage injury [Unknown]
  - Dry eye [Unknown]
  - Increased tendency to bruise [Unknown]
  - Back pain [Unknown]
  - Anaemia [Unknown]
  - Muscular weakness [Unknown]
